FAERS Safety Report 12054393 (Version 2)
Quarter: 2016Q2

REPORT INFORMATION
  Report Type: Spontaneous
  Country: DE (occurrence: DE)
  Receive Date: 20160209
  Receipt Date: 20160429
  Transmission Date: 20160815
  Serious: Yes (Hospitalization, Other)
  Sender: FDA-Public Use
  Company Number: DE-JNJFOC-20160205280

PATIENT
  Age: 74 Year
  Sex: Male
  Weight: 70 kg

DRUGS (7)
  1. XARELTO [Suspect]
     Active Substance: RIVAROXABAN
     Indication: CEREBROVASCULAR ACCIDENT PROPHYLAXIS
     Route: 048
     Dates: end: 20160127
  2. XARELTO [Suspect]
     Active Substance: RIVAROXABAN
     Indication: ATRIAL FIBRILLATION
     Route: 048
  3. XARELTO [Suspect]
     Active Substance: RIVAROXABAN
     Indication: ATRIAL FIBRILLATION
     Route: 048
  4. XARELTO [Suspect]
     Active Substance: RIVAROXABAN
     Indication: CEREBROVASCULAR ACCIDENT PROPHYLAXIS
     Route: 048
  5. DABIGATRAN [Concomitant]
     Active Substance: DABIGATRAN
     Indication: PROPHYLAXIS
     Route: 065
     Dates: start: 20160122
  6. XARELTO [Suspect]
     Active Substance: RIVAROXABAN
     Indication: CEREBROVASCULAR ACCIDENT PROPHYLAXIS
     Route: 048
  7. XARELTO [Suspect]
     Active Substance: RIVAROXABAN
     Indication: ATRIAL FIBRILLATION
     Route: 048
     Dates: end: 20160127

REACTIONS (6)
  - Hemianopia [Unknown]
  - Embolic stroke [Unknown]
  - Hemiparesis [Unknown]
  - Hemiparesis [Unknown]
  - Disorientation [Not Recovered/Not Resolved]
  - Quadrantanopia [Unknown]

NARRATIVE: CASE EVENT DATE: 20160122
